FAERS Safety Report 6818988-8 (Version None)
Quarter: 2010Q3

REPORT INFORMATION
  Report Type: 
  Country: None (occurrence: None)
  Receive Date: 20100701
  Receipt Date: 20100615
  Transmission Date: 20110219
  Serious: Yes (Hospitalization)
  Sender: FDA-Public Use
  Company Number: B0511406A

PATIENT
  Age: 67 Year
  Sex: Male

DRUGS (1)
  1. PAROXETINE HCL [Suspect]
     Indication: MAJOR DEPRESSION
     Dosage: 20 MG / PER DAY / ORAL
     Route: 048
     Dates: start: 20061111, end: 20061214

REACTIONS (18)
  - BLOOD PRESSURE INCREASED [None]
  - CONFUSIONAL STATE [None]
  - DEHYDRATION [None]
  - DISORIENTATION [None]
  - HOT FLUSH [None]
  - HYPERHIDROSIS [None]
  - MUSCLE RIGIDITY [None]
  - MUSCULOSKELETAL STIFFNESS [None]
  - MUTISM [None]
  - MYDRIASIS [None]
  - MYOCLONUS [None]
  - PSYCHOMOTOR RETARDATION [None]
  - PYREXIA [None]
  - RESPIRATORY RATE INCREASED [None]
  - SEROTONIN SYNDROME [None]
  - SINUS TACHYCARDIA [None]
  - STUPOR [None]
  - TREMOR [None]
